FAERS Safety Report 5983918-8 (Version None)
Quarter: 2008Q4

REPORT INFORMATION
  Report Type: 
  Country: None (occurrence: None)
  Receive Date: 20081208
  Receipt Date: 20081126
  Transmission Date: 20090506
  Serious: Yes (Disabling)
  Sender: FDA-Public Use
  Company Number: JP-ELI_LILLY_AND_COMPANY-JP200812000756

PATIENT
  Age: 49 Year
  Sex: Male

DRUGS (2)
  1. HUMALOG MIX 50/50 [Suspect]
     Indication: TYPE 2 DIABETES MELLITUS
     Dosage: 34 IU, DAILY (1/D)
     Route: 058
     Dates: start: 20081101, end: 20081101
  2. TRYPTANOL [Concomitant]
     Dosage: 10 MG, UNK
     Route: 048
     Dates: start: 20081001

REACTIONS (1)
  - BACK PAIN [None]
